FAERS Safety Report 13653141 (Version 1)
Quarter: 2017Q2

REPORT INFORMATION
  Report Type: Spontaneous
  Country: US (occurrence: US)
  Receive Date: 20170614
  Receipt Date: 20170614
  Transmission Date: 20170830
  Serious: Yes (Other)
  Sender: FDA-Public Use
  Company Number: US-ROCHE-670532

PATIENT
  Age: 35 Year
  Sex: Male

DRUGS (5)
  1. 5-FLUOROURACIL [Suspect]
     Active Substance: FLUOROURACIL
     Dosage: FORM: BOLUS
     Route: 065
  2. OXALIPLATIN. [Suspect]
     Active Substance: OXALIPLATIN
     Indication: RECTAL CANCER STAGE III
     Route: 065
  3. FOLINIC ACID [Suspect]
     Active Substance: LEUCOVORIN
     Indication: RECTAL CANCER STAGE III
     Route: 065
  4. CAPECITABINE. [Suspect]
     Active Substance: CAPECITABINE
     Indication: RECTAL CANCER STAGE III
     Route: 065
  5. 5-FLUOROURACIL [Suspect]
     Active Substance: FLUOROURACIL
     Indication: RECTAL CANCER STAGE III
     Dosage: FORM: INFUSION
     Route: 065

REACTIONS (2)
  - Cardiotoxicity [Recovering/Resolving]
  - Chronic gastritis [Unknown]
